FAERS Safety Report 9501650 (Version 1)
Quarter: 2013Q1

REPORT INFORMATION
  Report Type: Spontaneous
  Country: US (occurrence: None)
  Receive Date: 20130107
  Receipt Date: 20130107
  Transmission Date: 20140127
  Serious: Yes (Other)
  Sender: FDA-Public Use
  Company Number: PHEH2012US021250

PATIENT
  Sex: Female

DRUGS (13)
  1. GILENYA [Suspect]
     Route: 048
     Dates: start: 20110818
  2. MULTIVITAMINS (ASCORBIC ACID, ERGOCALCIFEROL, FOLIC ACID, NICOTINAMIDE, PANTHENOL, RETINOL, RIBOFLAVIN, THIAMINE HYDROCHLORIDE) [Concomitant]
  3. MIRAPEX (PRAMIPEXOLE DIHYDROCHLORIDE) [Concomitant]
  4. VESICARE (SOLIFENACIN SUCCINATE) [Concomitant]
  5. PREVACID (LANSOPRAZOLE) [Concomitant]
  6. LEXAPRO (ESCITALOPRAM OXALATE) [Concomitant]
  7. BACLOFEN (BACLOFEN) [Concomitant]
  8. FOSAMAC (ALENDRONATE SODIUM) [Concomitant]
  9. VITAMIN D1 (ERGOCALCIFEROL) [Concomitant]
  10. PREMARIN (ESTROGENS CONJUGATED) [Concomitant]
  11. IRON FORMLA (ASCORBIC ACID, CALCIUM PANTOTHENATE, COPPER GLUCONATE, CYANOCOBALAMIN, FEROUS GLUCONATE, NICOTINAMIDE, PYRIDOXINE HYDROCHLORIDE, RIBOFLAVIN, THIAMINE HYDROCHLORIDE) [Concomitant]
  12. POTASSIUM (POTASSIUM) [Concomitant]
  13. VITAMIN C [Concomitant]

REACTIONS (2)
  - Hypertension [None]
  - Dyspnoea [None]
